FAERS Safety Report 17870806 (Version 1)
Quarter: 2020Q2

REPORT INFORMATION
  Report Type: Spontaneous
  Country: CN (occurrence: CN)
  Receive Date: 20200608
  Receipt Date: 20200608
  Transmission Date: 20200714
  Serious: Yes (Hospitalization, Other)
  Sender: FDA-Public Use
  Company Number: CN-BAXTER-2020BAX011601

PATIENT
  Age: 32 Year
  Sex: Female
  Weight: 62 kg

DRUGS (6)
  1. 0.9% SODIUM CHLORIDE INJECTION [Suspect]
     Active Substance: SODIUM CHLORIDE
     Indication: MEDICATION DILUTION
     Dosage: ETOPOSIDE 0.1G + 0.9% NS 500ML
     Route: 041
     Dates: start: 20200506, end: 20200510
  2. 0.9% SODIUM CHLORIDE INJECTION [Suspect]
     Active Substance: SODIUM CHLORIDE
     Dosage: ETOPOSIDE 0.05G + 0.9% NS 250ML
     Route: 041
     Dates: start: 20200506, end: 20200510
  3. 5% GLUCOSE  INJECTION [Suspect]
     Active Substance: DEXTROSE
     Indication: MEDICATION DILUTION
     Dosage: IFOSFAMIDE 3G + 5% GS 500ML
     Route: 041
     Dates: start: 20200506, end: 20200510
  4. ETOPOSIDE. [Suspect]
     Active Substance: ETOPOSIDE
     Indication: NEOPLASM MALIGNANT
     Dosage: ETOPOSIDE 0.1G + 0.9% NS 500ML
     Route: 041
     Dates: start: 20200506, end: 20200510
  5. ETOPOSIDE. [Suspect]
     Active Substance: ETOPOSIDE
     Dosage: ETOPOSIDE 0.05G + 0.9% NS 250ML
     Route: 041
     Dates: start: 20200506, end: 20200510
  6. HOLOXAN [Suspect]
     Active Substance: IFOSFAMIDE
     Indication: NEOPLASM MALIGNANT
     Dosage: IFOSFAMIDE 3G + 5% GS 500ML
     Route: 041
     Dates: start: 20200506, end: 20200510

REACTIONS (3)
  - Neutrophil count decreased [Recovering/Resolving]
  - Leukopenia [Recovering/Resolving]
  - Bone marrow failure [Recovering/Resolving]

NARRATIVE: CASE EVENT DATE: 20200516
